FAERS Safety Report 16991801 (Version 1)
Quarter: 2019Q4

REPORT INFORMATION
  Report Type: Report from Study
  Country: None (occurrence: US)
  Receive Date: 20191104
  Receipt Date: 20191104
  Transmission Date: 20200122
  Serious: Yes (Other)
  Sender: FDA-Public Use
  Company Number: US-ABBVIE-18K-163-2232117-00

PATIENT
  Sex: Male

DRUGS (1)
  1. HUMIRA [Suspect]
     Active Substance: ADALIMUMAB
     Indication: RHEUMATOID ARTHRITIS
     Route: 058

REACTIONS (16)
  - Post-traumatic neck syndrome [Recovering/Resolving]
  - Back pain [Not Recovered/Not Resolved]
  - Gastrointestinal pain [Recovering/Resolving]
  - Deafness [Not Recovered/Not Resolved]
  - Back injury [Not Recovered/Not Resolved]
  - Impaired work ability [Unknown]
  - Abdominal pain upper [Not Recovered/Not Resolved]
  - Drug ineffective [Not Recovered/Not Resolved]
  - Mobility decreased [Unknown]
  - Mass [Unknown]
  - Diarrhoea [Unknown]
  - Red blood cell abnormality [Not Recovered/Not Resolved]
  - Road traffic accident [Recovering/Resolving]
  - Gastrointestinal disorder [Not Recovered/Not Resolved]
  - Rheumatoid arthritis [Not Recovered/Not Resolved]
  - Exercise tolerance decreased [Unknown]

NARRATIVE: CASE EVENT DATE: 2018
